FAERS Safety Report 10209268 (Version 1)
Quarter: 2014Q2

REPORT INFORMATION
  Report Type: Report from Study
  Country: ES (occurrence: ES)
  Receive Date: 20140530
  Receipt Date: 20140530
  Transmission Date: 20141212
  Serious: Yes (Other)
  Sender: FDA-Public Use
  Company Number: ES-BAXTER-2014BAX028289

PATIENT
  Sex: 0

DRUGS (5)
  1. GENOXAL 1 G INYECTABLE [Suspect]
     Indication: HODGKIN^S DISEASE
     Dosage: DAYS -6 TO -5
     Route: 042
  2. GENOXAL 1 G INYECTABLE [Suspect]
     Dosage: DAYS +3 AND +4
     Route: 042
  3. FLUDARABINE [Suspect]
     Indication: HODGKIN^S DISEASE
     Dosage: DAYS -6 TO -2
     Route: 042
  4. BUSULFAN [Suspect]
     Indication: HODGKIN^S DISEASE
     Dosage: X 1-2 DAYS (DAYS -3 TO -2)
     Route: 042
  5. MYCOPHENOLATE [Suspect]
     Indication: HODGKIN^S DISEASE
     Dosage: DAY +5
     Route: 065

REACTIONS (1)
  - Graft versus host disease [Unknown]
